FAERS Safety Report 11908271 (Version 3)
Quarter: 2016Q3

REPORT INFORMATION
  Report Type: Spontaneous
  Country: US (occurrence: US)
  Receive Date: 20160111
  Receipt Date: 20160728
  Transmission Date: 20161109
  Serious: No
  Sender: FDA-Public Use
  Company Number: US-PFIZER INC-2015465569

PATIENT
  Age: 63 Year
  Sex: Female
  Weight: 105 kg

DRUGS (2)
  1. BETADINE [Suspect]
     Active Substance: POVIDONE-IODINE
     Dosage: UNK
  2. LYRICA [Suspect]
     Active Substance: PREGABALIN
     Dosage: UNK

REACTIONS (1)
  - Drug hypersensitivity [Unknown]
